FAERS Safety Report 24646759 (Version 1)
Quarter: 2024Q4

REPORT INFORMATION
  Report Type: Spontaneous
  Country: US (occurrence: None)
  Receive Date: 20241120
  Receipt Date: 20241120
  Transmission Date: 20250115
  Serious: Yes (Death)
  Sender: Public
  Company Number: None

PATIENT
  Age: 70 Year
  Sex: Female

DRUGS (8)
  1. PIRFENIDONE [Suspect]
     Active Substance: PIRFENIDONE
     Indication: Idiopathic pulmonary fibrosis
     Dosage: 801MG QD ORAL
     Route: 048
     Dates: start: 20190308, end: 20231031
  2. DUONEB [Concomitant]
     Active Substance: ALBUTEROL SULFATE\IPRATROPIUM BROMIDE
  3. DIGOXIN [Concomitant]
     Active Substance: DIGOXIN
  4. ACYCLOVIR [Concomitant]
     Active Substance: ACYCLOVIR
  5. HALDOL [Concomitant]
     Active Substance: HALOPERIDOL
  6. OXHGEN [Concomitant]
  7. INTRANASAL [Concomitant]
  8. MAGNESIUM [Concomitant]
     Active Substance: MAGNESIUM

REACTIONS (2)
  - Right ventricular failure [None]
  - General physical health deterioration [None]

NARRATIVE: CASE EVENT DATE: 20241031
